FAERS Safety Report 5856435-3 (Version None)
Quarter: 2008Q3

REPORT INFORMATION
  Report Type: 
  Country: None (occurrence: None)
  Receive Date: 20080825
  Receipt Date: 20080527
  Transmission Date: 20090109
  Serious: No
  Sender: FDA-Public Use
  Company Number: A0724841A

PATIENT
  Age: 11 Year
  Sex: Female
  Weight: 36.4 kg

DRUGS (1)
  1. VERAMYST [Suspect]
     Dosage: 1PUFF AT NIGHT
     Route: 045
     Dates: start: 20080101, end: 20080101

REACTIONS (2)
  - EPISTAXIS [None]
  - NASAL INFLAMMATION [None]
